FAERS Safety Report 17918639 (Version 1)
Quarter: 2020Q2

REPORT INFORMATION
  Report Type: Spontaneous
  Country: ES (occurrence: ES)
  Receive Date: 20200619
  Receipt Date: 20200619
  Transmission Date: 20200714
  Serious: Yes (Hospitalization)
  Sender: FDA-Public Use
  Company Number: NVSC2020ES171005

PATIENT
  Age: 44 Year
  Sex: Male

DRUGS (5)
  1. AZITHROMYCIN ANHYDROUS. [Suspect]
     Active Substance: AZITHROMYCIN ANHYDROUS
     Indication: PNEUMONIA
  2. HIDROXICLOROQUINA [Concomitant]
     Active Substance: HYDROXYCHLOROQUINE
     Indication: CORONAVIRUS INFECTION
     Dosage: UNK
     Route: 048
     Dates: start: 20200327
  3. CEFTRIAXONA [Suspect]
     Active Substance: CEFTRIAXONE
     Indication: CORONAVIRUS INFECTION
     Dosage: 2 G, QD (2GR/24H)
     Route: 042
     Dates: start: 20200327, end: 20200329
  4. AZITHROMYCIN ANHYDROUS. [Suspect]
     Active Substance: AZITHROMYCIN ANHYDROUS
     Indication: CORONAVIRUS INFECTION
     Dosage: 500 MG, QD (500 MG/24H)
     Route: 048
     Dates: start: 20200327, end: 20200329
  5. CEFTRIAXONA [Suspect]
     Active Substance: CEFTRIAXONE
     Indication: PNEUMONIA

REACTIONS (1)
  - Clostridium difficile colitis [Recovering/Resolving]

NARRATIVE: CASE EVENT DATE: 20200402
